FAERS Safety Report 23251273 (Version 3)
Quarter: 2024Q1

REPORT INFORMATION
  Report Type: Spontaneous
  Country: ES (occurrence: ES)
  Receive Date: 20231201
  Receipt Date: 20240102
  Transmission Date: 20240410
  Serious: Yes (Hospitalization, Other)
  Sender: FDA-Public Use
  Company Number: ES-JNJFOC-20231166684

PATIENT
  Age: 48 Year
  Sex: Male
  Weight: 166 kg

DRUGS (10)
  1. SPRAVATO [Suspect]
     Active Substance: ESKETAMINE
     Indication: Product used for unknown indication
     Dates: start: 20230928, end: 20231116
  2. SPRAVATO [Suspect]
     Active Substance: ESKETAMINE
     Dates: start: 20231217
  3. METFORMIN HYDROCHLORIDE [Concomitant]
     Active Substance: METFORMIN HYDROCHLORIDE
     Dosage: 0.5 TABLET
  4. ENALAPRIL [Concomitant]
     Active Substance: ENALAPRIL
  5. LEVOTHYROXINE SODIUM [Concomitant]
     Active Substance: LEVOTHYROXINE SODIUM
  6. CARIPRAZINE HYDROCHLORIDE [Concomitant]
     Active Substance: CARIPRAZINE HYDROCHLORIDE
  7. LORAZEPAM [Concomitant]
     Active Substance: LORAZEPAM
     Dosage: 1 - 1 - 0 - 2 - 0
  8. BUPROPION HYDROCHLORIDE [Concomitant]
     Active Substance: BUPROPION HYDROCHLORIDE
  9. VENLAFAXINE HYDROCHLORIDE [Concomitant]
     Active Substance: VENLAFAXINE HYDROCHLORIDE
  10. CALCIFEDIOL [Concomitant]
     Active Substance: CALCIFEDIOL
     Dosage: DRINKABLE;  1.5 ML

REACTIONS (3)
  - Pulmonary embolism [Recovered/Resolved]
  - Drug abuse [Unknown]
  - Tooth infection [Unknown]

NARRATIVE: CASE EVENT DATE: 20230101
